FAERS Safety Report 7579053-8 (Version None)
Quarter: 2011Q2

REPORT INFORMATION
  Report Type: 
  Country: None (occurrence: None)
  Receive Date: 20110628
  Receipt Date: 20110623
  Transmission Date: 20111010
  Serious: Yes (Other)
  Sender: FDA-Public Use
  Company Number: CHPA2011US08432

PATIENT
  Age: 66 Year
  Sex: Female

DRUGS (4)
  1. DICLOFENAC SODIUM [Suspect]
     Dosage: 2 DF, QD
     Route: 048
  2. VOLTAREN [Suspect]
     Indication: ARTHRITIS
     Dosage: A DAB THE SIZE OF A THUMB NAIL, UNK
     Route: 061
  3. VOLTAREN [Suspect]
     Dosage: A DAB THE SIZE OF A THUMB NAIL., UNK
     Route: 061
  4. DICLOFENAC SODIUM [Suspect]
     Dosage: 2 DF, QOD
     Route: 048

REACTIONS (4)
  - RENAL FAILURE [None]
  - DRUG ADMINISTERED AT INAPPROPRIATE SITE [None]
  - DRUG DISPENSING ERROR [None]
  - DRUG ADMINISTRATION ERROR [None]
